FAERS Safety Report 20166927 (Version 2)
Quarter: 2021Q4

REPORT INFORMATION
  Report Type: Spontaneous
  Country: CA (occurrence: CA)
  Receive Date: 20211209
  Receipt Date: 20211216
  Transmission Date: 20220303
  Serious: Yes (Life-Threatening, Other)
  Sender: FDA-Public Use
  Company Number: CA-PFIZER INC-202101696961

PATIENT
  Sex: Female
  Weight: 40.816 kg

DRUGS (2)
  1. VINCRISTINE SULFATE [Suspect]
     Active Substance: VINCRISTINE SULFATE
     Dosage: UNK
     Dates: start: 1981
  2. VINCRISTINE SULFATE [Suspect]
     Active Substance: VINCRISTINE SULFATE
     Dosage: 28 MG
     Dates: start: 1982

REACTIONS (6)
  - Suicidal ideation [Unknown]
  - Spinal fracture [Unknown]
  - Lung disorder [Unknown]
  - Intentional overdose [Unknown]
  - Back disorder [Unknown]
  - Gait inability [Unknown]
